FAERS Safety Report 24204297 (Version 5)
Quarter: 2024Q4

REPORT INFORMATION
  Report Type: Report from Study
  Country: FR (occurrence: FR)
  Receive Date: 20240813
  Receipt Date: 20241202
  Transmission Date: 20250114
  Serious: Yes (Congenital Anomaly, Other)
  Sender: SANOFI AVENTIS
  Company Number: FR-SA-SAC20240809001247

PATIENT
  Age: 31 Year
  Sex: Female
  Weight: 63 kg

DRUGS (5)
  1. DUPILUMAB [Suspect]
     Active Substance: DUPILUMAB
     Indication: Chronic rhinosinusitis with nasal polyps
     Dosage: 300 MG
     Route: 065
     Dates: start: 20240222
  2. DUPILUMAB [Suspect]
     Active Substance: DUPILUMAB
     Dosage: 300 MG, QOW
     Route: 065
     Dates: end: 20240711
  3. FLUTICASONE PROPIONATE\SALMETEROL XINAFOATE [Concomitant]
     Active Substance: FLUTICASONE PROPIONATE\SALMETEROL XINAFOATE
     Dosage: UNK
     Dates: start: 2015
  4. EBASTINE [Concomitant]
     Active Substance: EBASTINE
     Dosage: UNK
     Dates: start: 2015
  5. BUDESONIDE [Concomitant]
     Active Substance: BUDESONIDE
     Indication: Chronic rhinosinusitis with nasal polyps
     Dosage: UNK
     Route: 045
     Dates: start: 201710

REACTIONS (3)
  - Abortion spontaneous [Unknown]
  - Abortion spontaneous [Recovered/Resolved]
  - Maternal exposure during pregnancy [Recovered/Resolved]

NARRATIVE: CASE EVENT DATE: 20240622
